FAERS Safety Report 24840642 (Version 1)
Quarter: 2025Q1

REPORT INFORMATION
  Report Type: Spontaneous
  Country: RU (occurrence: RU)
  Receive Date: 20250114
  Receipt Date: 20250114
  Transmission Date: 20250408
  Serious: Yes (Other)
  Sender: NOVARTIS
  Company Number: RU-002147023-NVSC2024RU247919

PATIENT
  Age: 50 Year
  Sex: Female

DRUGS (3)
  1. CAPMATINIB [Suspect]
     Active Substance: CAPMATINIB
     Indication: Non-small cell lung cancer metastatic
     Dosage: 200 MG, BID
     Route: 065
     Dates: start: 20240302
  2. CAPMATINIB [Suspect]
     Active Substance: CAPMATINIB
     Dosage: 150 MG, BID
     Route: 065
  3. CAPMATINIB [Suspect]
     Active Substance: CAPMATINIB
     Dosage: 300 MG, QD
     Route: 065

REACTIONS (3)
  - Oedema peripheral [Recovered/Resolved]
  - Oedema peripheral [Unknown]
  - Therapy partial responder [Unknown]
